FAERS Safety Report 5158025-7 (Version None)
Quarter: 2006Q4

REPORT INFORMATION
  Report Type: 
  Country: None (occurrence: None)
  Receive Date: 20061116
  Receipt Date: 20061103
  Transmission Date: 20070319
  Serious: Yes (Death)
  Sender: FDA-Public Use
  Company Number: 2006135136

PATIENT
  Sex: Female

DRUGS (1)
  1. SUTENT [Suspect]
     Indication: RENAL CELL CARCINOMA STAGE UNSPECIFIED
     Dosage: ORAL
     Route: 048
     Dates: start: 20060301

REACTIONS (4)
  - DIARRHOEA [None]
  - HEPATIC FAILURE [None]
  - HYPOTHERMIA [None]
  - URINARY TRACT INFECTION [None]
